FAERS Safety Report 24575939 (Version 2)
Quarter: 2024Q4

REPORT INFORMATION
  Report Type: Spontaneous
  Country: PL (occurrence: PL)
  Receive Date: 20241104
  Receipt Date: 20241114
  Transmission Date: 20250115
  Serious: Yes (Other)
  Sender: ABBVIE
  Company Number: PL-ABBVIE-5984170

PATIENT
  Age: 45 Year
  Sex: Male

DRUGS (4)
  1. VENETOCLAX [Suspect]
     Active Substance: VENETOCLAX
     Indication: Acute myeloid leukaemia
     Dosage: 400 MILLIGRAM LAST ADMIN DATE: 2023
     Route: 048
     Dates: start: 20230526
  2. VENETOCLAX [Suspect]
     Active Substance: VENETOCLAX
     Indication: Acute myeloid leukaemia
     Route: 048
     Dates: start: 20230628
  3. Azacitidine stada [Concomitant]
     Indication: Acute myeloid leukaemia
     Dosage: LAST ADMIN DATE: 2023
     Route: 065
     Dates: start: 20230526
  4. Azacitidine stada [Concomitant]
     Indication: Acute myeloid leukaemia
     Route: 065
     Dates: start: 20230628

REACTIONS (9)
  - Pancytopenia [Unknown]
  - Alanine aminotransferase abnormal [Unknown]
  - Aspartate aminotransferase abnormal [Unknown]
  - Blood lactate dehydrogenase abnormal [Unknown]
  - Liver injury [Unknown]
  - Inflammatory marker increased [Recovering/Resolving]
  - White blood cell disorder [Recovering/Resolving]
  - Neutrophil count abnormal [Recovering/Resolving]
  - Thrombocytopenia [Recovered/Resolved]

NARRATIVE: CASE EVENT DATE: 20230101
